FAERS Safety Report 11798128 (Version 1)
Quarter: 2015Q4

REPORT INFORMATION
  Report Type: Spontaneous
  Country: US (occurrence: US)
  Receive Date: 20151203
  Receipt Date: 20151203
  Transmission Date: 20160305
  Serious: Yes (Hospitalization, Other)
  Sender: FDA-Public Use
  Company Number: US-HARRIS PHARMACEUTICAL-2015HAR00014

PATIENT
  Age: 62 Year
  Sex: Male

DRUGS (1)
  1. TERBINAFINE. [Suspect]
     Active Substance: TERBINAFINE
     Indication: ONYCHOMYCOSIS
     Dosage: UNK
     Route: 048

REACTIONS (5)
  - Acute kidney injury [None]
  - Systemic lupus erythematosus [Recovering/Resolving]
  - Pleural effusion [Recovering/Resolving]
  - Delirium [Recovering/Resolving]
  - Cardiac tamponade [Recovering/Resolving]
